FAERS Safety Report 10010834 (Version 1)
Quarter: 2014Q1

REPORT INFORMATION
  Report Type: Spontaneous
  Country: GB (occurrence: None)
  Receive Date: 20140311
  Receipt Date: 20140311
  Transmission Date: 20141002
  Serious: Yes (Other)
  Sender: FDA-Public Use
  Company Number: 2014-000530

PATIENT
  Sex: 0

DRUGS (1)
  1. ASACOL [Suspect]
     Route: 048

REACTIONS (2)
  - Gastrointestinal disorder [None]
  - Medication residue present [None]
